FAERS Safety Report 23273403 (Version 2)
Quarter: 2023Q4

REPORT INFORMATION
  Report Type: Report from Study
  Country: BE (occurrence: BE)
  Receive Date: 20231207
  Receipt Date: 20231222
  Transmission Date: 20240110
  Serious: Yes (Death, Hospitalization, Other)
  Sender: FDA-Public Use
  Company Number: BE-BIOVITRUM-2023-BE-018010

PATIENT

DRUGS (10)
  1. PEGCETACOPLAN [Suspect]
     Active Substance: PEGCETACOPLAN
     Indication: Paroxysmal nocturnal haemoglobinuria
     Dosage: 1080MG/20MLZINR: 0927759 26G NEEDLE CURRENT PRESCRIPTION PERIOD 06-OCT-2023 TO 04-OCT-2024 ASPAVELI
     Route: 058
  2. PEGCETACOPLAN [Suspect]
     Active Substance: PEGCETACOPLAN
     Dosage: 1080MG/20ML1080 MG 2 TIMES/WEEK
     Route: 058
  3. AMOXICILLIN [Concomitant]
     Active Substance: AMOXICILLIN
     Indication: Product used for unknown indication
     Dosage: 500MG 1X/DAY
  4. FOLIC ACID [Concomitant]
     Active Substance: FOLIC ACID
     Indication: Product used for unknown indication
     Dosage: 4MG 1X/DAY
  5. Pantomed [Concomitant]
     Indication: Product used for unknown indication
     Dosage: 20MG 1X/DAY
  6. BISOPROLOL [Concomitant]
     Active Substance: BISOPROLOL\BISOPROLOL FUMARATE
     Indication: Product used for unknown indication
     Dosage: 2.5 MG 1X/DAY
  7. Meta relax [Concomitant]
     Indication: Product used for unknown indication
     Dosage: 1X/DAY
  8. Meta relax [Concomitant]
     Dosage: 1X/DAY
  9. Meta relax [Concomitant]
     Dosage: 1X/DAY
  10. BILASTINE [Concomitant]
     Active Substance: BILASTINE
     Indication: Product used for unknown indication
     Dosage: IF NEEDED

REACTIONS (7)
  - Pneumonia [Not Recovered/Not Resolved]
  - Anaemia [Unknown]
  - Dyspnoea [Not Recovered/Not Resolved]
  - Nausea [Recovered/Resolved]
  - Vomiting [Recovered/Resolved]
  - Dizziness [Not Recovered/Not Resolved]
  - Sepsis [Fatal]

NARRATIVE: CASE EVENT DATE: 20230930
